FAERS Safety Report 20019304 (Version 3)
Quarter: 2023Q2

REPORT INFORMATION
  Report Type: Spontaneous
  Country: JP (occurrence: JP)
  Receive Date: 20211101
  Receipt Date: 20230602
  Transmission Date: 20230721
  Serious: Yes (Hospitalization, Other)
  Sender: FDA-Public Use
  Company Number: JP-PFIZER INC-202101395718

PATIENT
  Age: 53 Year
  Sex: Male

DRUGS (4)
  1. LINEZOLID [Suspect]
     Active Substance: LINEZOLID
     Indication: Staphylococcal infection
     Dosage: UNK
  2. PIPERACILLIN SODIUM\TAZOBACTAM SODIUM [Suspect]
     Active Substance: PIPERACILLIN SODIUM\TAZOBACTAM SODIUM
     Dosage: UNK
  3. AFATINIB [Concomitant]
     Active Substance: AFATINIB
     Dosage: 40 MG, DAILY
  4. AFATINIB [Concomitant]
     Active Substance: AFATINIB
     Dosage: 20 MG, DAILY

REACTIONS (1)
  - Acute kidney injury [Recovering/Resolving]
